FAERS Safety Report 7170764-5 (Version None)
Quarter: 2010Q4

REPORT INFORMATION
  Report Type: 
  Country: None (occurrence: None)
  Receive Date: 20101217
  Receipt Date: 20101210
  Transmission Date: 20110411
  Serious: Yes (Hospitalization)
  Sender: FDA-Public Use
  Company Number: US-ASTRAZENECA-2010SE58659

PATIENT
  Age: 76 Year
  Sex: Female

DRUGS (9)
  1. CRESTOR [Suspect]
     Route: 048
  2. METOPROLOL [Concomitant]
  3. DIGOXIN [Concomitant]
  4. LASIX [Concomitant]
  5. AVAPRO [Concomitant]
  6. SYNTHROID [Concomitant]
  7. PROVIGIL [Concomitant]
  8. ZOLOFT [Concomitant]
  9. PREVACID [Concomitant]

REACTIONS (2)
  - CEREBROVASCULAR ACCIDENT [None]
  - GASTROSTOMY TUBE INSERTION [None]
